FAERS Safety Report 8594771-0 (Version None)
Quarter: 2012Q3

REPORT INFORMATION
  Report Type: 
  Country: None (occurrence: None)
  Receive Date: 20120815
  Receipt Date: 20120808
  Transmission Date: 20120928
  Serious: Yes (Other)
  Sender: FDA-Public Use
  Company Number: US-SHIRE-ALL1-2012-03800

PATIENT
  Sex: Male
  Weight: 72.562 kg

DRUGS (3)
  1. ENTOCORT EC [Concomitant]
     Indication: CROHN'S DISEASE
     Dosage: 6 MG, 2X/DAY:BID
     Route: 048
  2. PENTASA [Suspect]
     Indication: CROHN'S DISEASE
     Dosage: 1000 MG, 2X/DAY:BID
     Route: 048
  3. DILANTIN [Concomitant]
     Indication: CONVULSION
     Dosage: 350 MG, 1X/DAY:QD
     Route: 048
     Dates: start: 19850101

REACTIONS (4)
  - HYPERTENSION [None]
  - PHOTOSENSITIVITY REACTION [None]
  - OFF LABEL USE [None]
  - PROSTATE CANCER [None]
